FAERS Safety Report 9553799 (Version 1)
Quarter: 2013Q3

REPORT INFORMATION
  Report Type: Spontaneous
  Country: US (occurrence: None)
  Receive Date: 20130924
  Receipt Date: 20130924
  Transmission Date: 20140515
  Serious: Yes (Other)
  Sender: FDA-Public Use
  Company Number: None

PATIENT
  Age: 73 Year
  Sex: Female
  Weight: 88.45 kg

DRUGS (9)
  1. CITALOPRAM HBR [Suspect]
     Indication: DEPRESSION
     Dosage: 20 MG, 1/2 TABLET/WEEK INCREASE 1 TABLET, TAKEN BY MOUTH
     Dates: start: 20111217, end: 20111221
  2. SYNTHROID [Concomitant]
  3. METOPROLOL [Concomitant]
  4. LISINOPRIL [Concomitant]
  5. HCTZ [Concomitant]
  6. ZANAX [Concomitant]
  7. CENTRUM SILVER [Concomitant]
  8. BEE POLLEN [Concomitant]
  9. TYLENOL [Concomitant]

REACTIONS (2)
  - Abasia [None]
  - Impaired self-care [None]
